FAERS Safety Report 15709033 (Version 2)
Quarter: 2019Q1

REPORT INFORMATION
  Report Type: Spontaneous
  Country: US (occurrence: US)
  Receive Date: 20181211
  Receipt Date: 20190212
  Transmission Date: 20190417
  Serious: Yes (Death, Hospitalization)
  Sender: FDA-Public Use
  Company Number: US-BAYER-2018-223986

PATIENT
  Age: 24 Year
  Sex: Female

DRUGS (2)
  1. QUADRIVALENT INFLUENZA VACCINE [Concomitant]
     Dosage: UNK
     Route: 030
     Dates: start: 20180209
  2. ADEMPAS [Suspect]
     Active Substance: RIOCIGUAT
     Indication: PULMONARY HYPERTENSION
     Dosage: 1 MG

REACTIONS (3)
  - Pulmonary embolism [Fatal]
  - Sickle cell disease [Fatal]
  - Hypertensive heart disease [None]
